FAERS Safety Report 9183253 (Version 1)
Quarter: 2012Q4

REPORT INFORMATION
  Report Type: 
  Country: MX (occurrence: MX)
  Receive Date: 20121031
  Receipt Date: 20121031
  Transmission Date: 20130627
  Serious: Yes (Hospitalization, Other)
  Sender: FDA-Public Use
  Company Number: PHHY2012MX088251

PATIENT
  Sex: Female

DRUGS (2)
  1. GALVUS MET [Suspect]
     Indication: DIABETES MELLITUS
     Dosage: 1 DF (850 mg metf and 50 mg vild), daily
     Dates: start: 20120515, end: 20120912
  2. CO-DIOVAN [Suspect]
     Indication: HYPERTENSION
     Dosage: 1 DF (160/12.5mg), daily
     Dates: end: 201208

REACTIONS (3)
  - Malignant neoplasm of ampulla of Vater [Unknown]
  - Fistula [Unknown]
  - Electrolyte imbalance [Unknown]
